FAERS Safety Report 5299324-8 (Version None)
Quarter: 2007Q2

REPORT INFORMATION
  Report Type: 
  Country: None (occurrence: None)
  Receive Date: 20070411
  Receipt Date: 20070411
  Transmission Date: 20071010
  Serious: Yes (Life-Threatening, Hospitalization, Other)
  Sender: FDA-Public Use
  Company Number: None

PATIENT
  Sex: Female
  Weight: 117.028 kg

DRUGS (3)
  1. CHANTIX [Suspect]
     Indication: SMOKING CESSATION THERAPY
     Dosage: CHANTIX   STARTER PACK  PO
     Route: 048
     Dates: start: 20060210
  2. EFFEXOR XR [Suspect]
     Indication: ANXIETY
     Dosage: EFFEXOR XR 300   ONE QD  PO
     Route: 048
     Dates: start: 20030101
  3. CAFFEINE [Concomitant]

REACTIONS (4)
  - APHASIA [None]
  - DRUG INTERACTION [None]
  - GRAND MAL CONVULSION [None]
  - MENTAL STATUS CHANGES [None]
